FAERS Safety Report 7534154-5 (Version None)
Quarter: 2011Q2

REPORT INFORMATION
  Report Type: 
  Country: None (occurrence: None)
  Receive Date: 20110608
  Receipt Date: 20061103
  Transmission Date: 20111010
  Serious: Yes (Other)
  Sender: FDA-Public Use
  Company Number: PHMT2006CA01520

PATIENT
  Sex: Male

DRUGS (7)
  1. FERROUS GLUCONATE [Concomitant]
  2. MULTI-VIT [Concomitant]
  3. HYDROCHLOROTHIAZIDE [Concomitant]
  4. SYNTHROID [Concomitant]
  5. SANDOSTATIN LAR [Suspect]
     Indication: HEPATIC CANCER METASTATIC
     Dosage: 20 MG, UNK
     Dates: start: 20051006
  6. METOCLOPRAMIDE [Concomitant]
  7. PROSCAR [Concomitant]

REACTIONS (4)
  - ARTHROPATHY [None]
  - PAIN [None]
  - MOBILITY DECREASED [None]
  - BLOOD PRESSURE INCREASED [None]
